FAERS Safety Report 24409818 (Version 1)
Quarter: 2024Q4

REPORT INFORMATION
  Report Type: Spontaneous
  Country: IT (occurrence: IT)
  Receive Date: 20241008
  Receipt Date: 20241008
  Transmission Date: 20250114
  Serious: Yes (Other)
  Sender: ROCHE
  Company Number: None

PATIENT
  Age: 77 Year
  Sex: Female
  Weight: 165 kg

DRUGS (6)
  1. LUCENTIS [Suspect]
     Active Substance: RANIBIZUMAB
     Indication: Choroidal neovascularisation
     Dosage: 1 DOSAGE FORM
     Route: 050
     Dates: start: 20220513, end: 20220513
  2. LUCENTIS [Suspect]
     Active Substance: RANIBIZUMAB
     Dosage: 1 DOSAGE FORM
     Route: 050
     Dates: start: 20220720, end: 20220720
  3. LUCENTIS [Suspect]
     Active Substance: RANIBIZUMAB
     Dosage: 1 DOSAGE FORM
     Route: 050
     Dates: start: 20221020, end: 20221020
  4. LUCENTIS [Suspect]
     Active Substance: RANIBIZUMAB
     Dosage: 1 DOSAGE FORM
     Route: 050
     Dates: start: 20230112, end: 20230112
  5. LUCENTIS [Suspect]
     Active Substance: RANIBIZUMAB
     Dosage: 1 DOSAGE FORM
     Route: 050
     Dates: start: 20240125, end: 20240125
  6. ASPIRIN [Concomitant]
     Active Substance: ASPIRIN
     Indication: Thrombosis prophylaxis
     Dosage: 100 MG, Q24H
     Route: 050

REACTIONS (2)
  - Subretinal fluid [Not Recovered/Not Resolved]
  - Therapeutic product effect decreased [Not Recovered/Not Resolved]

NARRATIVE: CASE EVENT DATE: 20240125
